FAERS Safety Report 6021533-0 (Version None)
Quarter: 2008Q4

REPORT INFORMATION
  Report Type: 
  Country: None (occurrence: None)
  Receive Date: 20081229
  Receipt Date: 20081222
  Transmission Date: 20090506
  Serious: Yes (Other)
  Sender: FDA-Public Use
  Company Number: US-BRISTOL-MYERS SQUIBB COMPANY-14454953

PATIENT
  Age: 12 Year
  Sex: Female

DRUGS (5)
  1. ETOPOSIDE [Suspect]
     Indication: PROPHYLAXIS AGAINST TRANSPLANT REJECTION
  2. CARBOPLATIN [Suspect]
     Indication: PROPHYLAXIS AGAINST TRANSPLANT REJECTION
  3. MELPHALAN [Suspect]
     Indication: PROPHYLAXIS AGAINST TRANSPLANT REJECTION
  4. FLUDARABINE [Suspect]
     Indication: PROPHYLAXIS AGAINST TRANSPLANT REJECTION
  5. THIOTEPA [Suspect]
     Indication: PROPHYLAXIS AGAINST TRANSPLANT REJECTION

REACTIONS (3)
  - LEUKOENCEPHALOPATHY [None]
  - MYELOPATHY [None]
  - NEUROPATHY PERIPHERAL [None]
